FAERS Safety Report 22697128 (Version 2)
Quarter: 2024Q1

REPORT INFORMATION
  Report Type: Spontaneous
  Country: SI (occurrence: SI)
  Receive Date: 20230712
  Receipt Date: 20240322
  Transmission Date: 20240410
  Serious: Yes (Other)
  Sender: FDA-Public Use
  Company Number: None

PATIENT
  Age: 71 Year
  Sex: Male
  Weight: 95 kg

DRUGS (7)
  1. MESALAMINE [Suspect]
     Active Substance: MESALAMINE
     Indication: Colitis ulcerative
     Dosage: DRUG STRENGTH: 4 G DOSE: 1X IN THE EVENING
     Route: 054
     Dates: start: 20230607, end: 20230618
  2. BUDESONIDE [Concomitant]
     Active Substance: BUDESONIDE
     Indication: Colitis ulcerative
     Dosage: DRUG STRENGTH: 2 MG/DOSE?DOSE: 1X IN THE MORNING
     Route: 054
     Dates: start: 20230607
  3. MOCLOBEMIDE [Concomitant]
     Active Substance: MOCLOBEMIDE
     Indication: Social anxiety disorder
     Dosage: DRUG STRENGTH: 150 MG?DOSE: 0.5 TABLETS IN THE MORNING
     Route: 048
     Dates: start: 2015
  4. ALPRAZOLAM [Concomitant]
     Active Substance: ALPRAZOLAM
     Indication: Anxiety
     Dosage: TIME INTERVAL: AS NECESSARY: DRUG STRENGTH: 0.25 MG?DOSE: 1 TABLET AS NEEDED
     Route: 048
     Dates: start: 2016
  5. TAMSULOSIN HYDROCHLORIDE [Concomitant]
     Active Substance: TAMSULOSIN HYDROCHLORIDE
     Indication: Benign prostatic hyperplasia
     Dosage: DRUG STRENGTH: 0.4 MG?DOSE: 1X1?OCAS 0,4 MG
     Route: 048
     Dates: start: 2015
  6. VOXIN COMBO [Concomitant]
     Indication: Essential hypertension
     Dosage: 2 MG/0,625 MG
     Route: 048
     Dates: start: 2015
  7. SILDENAFIL CITRATE [Concomitant]
     Active Substance: SILDENAFIL CITRATE
     Indication: Erectile dysfunction
     Dosage: TIME INTERVAL: AS NECESSARY: DRUG STRENGTH: 50 MG?DOSE: 1 TABLET AS NEEDED
     Route: 048
     Dates: start: 2018

REACTIONS (1)
  - Anal inflammation [Not Recovered/Not Resolved]

NARRATIVE: CASE EVENT DATE: 20230610
